FAERS Safety Report 8578911-5 (Version None)
Quarter: 2012Q3

REPORT INFORMATION
  Report Type: 
  Country: None (occurrence: None)
  Receive Date: 20120808
  Receipt Date: 20120801
  Transmission Date: 20120928
  Serious: Yes (Other)
  Sender: FDA-Public Use
  Company Number: MX-BIOMARINP-002797

PATIENT
  Sex: Female
  Weight: 13.4 kg

DRUGS (4)
  1. AMOXACILIN [Concomitant]
     Indication: PHARYNGOTONSILLITIS
     Dates: start: 20120702, end: 20120709
  2. STERIMAR [Concomitant]
     Indication: NASAL CONGESTION
     Dates: start: 20120707
  3. NAGLAZYME [Suspect]
     Indication: MUCOPOLYSACCHARIDOSIS VI
     Route: 041
  4. FLUTICASONE FUROATE [Concomitant]
     Indication: NASAL CONGESTION
     Dates: start: 20120702, end: 20120723

REACTIONS (1)
  - VITH NERVE PARALYSIS [None]
